FAERS Safety Report 18641729 (Version 2)
Quarter: 2020Q4

REPORT INFORMATION
  Report Type: Report from Study
  Country: DE (occurrence: DE)
  Receive Date: 20201221
  Receipt Date: 20201223
  Transmission Date: 20210114
  Serious: Yes (Death)
  Sender: FDA-Public Use
  Company Number: NVSC2020DE337726

PATIENT
  Sex: Female

DRUGS (5)
  1. KISQALI [Suspect]
     Active Substance: RIBOCICLIB
     Dosage: 600 MG (DAILY DOSE) (SCHEMA 21 DAYS INTAKE, 7 DAYS PAUSE)
     Route: 048
     Dates: start: 20200430, end: 20200701
  2. KISQALI [Suspect]
     Active Substance: RIBOCICLIB
     Dosage: 600 MG (DAILY DOSE) (SCHEMA 21 DAYS INTAKE, 7 DAYS PAUSE)
     Route: 048
     Dates: start: 20200710, end: 20200805
  3. KISQALI [Suspect]
     Active Substance: RIBOCICLIB
     Dosage: 400 MG (DAILY DOSE) (SCHEMA 21 DAYS INTAKE, 7 DAYS PAUSE)
     Route: 048
     Dates: start: 20200806, end: 20200827
  4. KISQALI [Suspect]
     Active Substance: RIBOCICLIB
     Indication: BREAST CANCER METASTATIC
     Dosage: 600 MG (DAILY DOSE) (SCHEMA 21 DAYS INTAKE, 7 DAYS PAUSE)
     Route: 048
     Dates: start: 20200326, end: 20200422
  5. LETROZOLE. [Suspect]
     Active Substance: LETROZOLE
     Indication: BREAST CANCER METASTATIC
     Dosage: 2.5 MG (DAILY DOSE)
     Route: 048
     Dates: start: 20200326

REACTIONS (3)
  - Breast cancer metastatic [Fatal]
  - Malignant neoplasm progression [Fatal]
  - General physical health deterioration [Fatal]

NARRATIVE: CASE EVENT DATE: 20201016
